FAERS Safety Report 7780440-3 (Version None)
Quarter: 2011Q3

REPORT INFORMATION
  Report Type: 
  Country: None (occurrence: None)
  Receive Date: 20110927
  Receipt Date: 20110916
  Transmission Date: 20111222
  Serious: Yes (Life-Threatening, Hospitalization)
  Sender: FDA-Public Use
  Company Number: AU-SANOFI-AVENTIS-2010SA055748

PATIENT
  Age: 65 Year
  Sex: Male
  Weight: 61 kg

DRUGS (14)
  1. XELODA [Suspect]
     Indication: RECTAL CANCER
     Route: 048
     Dates: start: 20100816, end: 20100816
  2. SOLUTIONS FOR PARENTERAL NUTRITION [Concomitant]
  3. OXALIPLATIN [Suspect]
     Dosage: 50MG/M2  IV ON D1, 8, 15, 22, 29
     Route: 042
     Dates: start: 20100830, end: 20100830
  4. THERAPEUTIC RADIOPHARMACEUTICALS [Suspect]
     Indication: RECTAL CANCER
     Dosage: 22 FRACTIONS OF 1.8GY FOR TOTAL OF 39.6GY.
     Dates: start: 20100816, end: 20100903
  5. DEXAMETHASONE [Concomitant]
     Dosage: DAILY FOR 2 DAYS FOLLOWING EACH TREATMENT
     Route: 048
     Dates: start: 20100816, end: 20100902
  6. XELODA [Suspect]
     Dosage: 825MG/M2 PO BID D1-33 W/O WEEKENDS + OPTIONAL BOOST
     Route: 048
     Dates: start: 20100827, end: 20100827
  7. OXALIPLATIN [Suspect]
     Indication: RECTAL CANCER
     Route: 042
     Dates: start: 20100816, end: 20100816
  8. DEXAMETHASONE [Concomitant]
     Indication: PROPHYLAXIS
     Dosage: DAILY FOR 2 DAYS FOLLOWING EACH TREATMENT
     Route: 042
     Dates: start: 20100816, end: 20100902
  9. GRANISETRON [Concomitant]
     Dosage: DAILY FOR 2 DAYS FOLLOWING EACH TREATMENT
     Route: 048
     Dates: start: 20100816, end: 20100902
  10. CANDESARTAN CILEXETIL [Concomitant]
     Indication: HYPERTENSION
     Route: 048
  11. LOPERAMIDE HCL [Concomitant]
     Route: 048
     Dates: start: 20100801
  12. FOLIC ACID [Concomitant]
     Indication: NUTRITIONAL SUPPORT
     Route: 048
     Dates: start: 20100801, end: 20100921
  13. GRANISETRON [Concomitant]
     Indication: PROPHYLAXIS
     Dosage: DAILY FOR 2 DAYS FOLLOWING EACH TREATMENT
     Route: 042
     Dates: start: 20100816, end: 20100902
  14. METOCLOPRAMIDE [Concomitant]
     Indication: PROPHYLAXIS
     Dosage: 10-20 MG, UP TO 4X DAILY FOR 5 DAYS POST-TREATMENT, EXTENDED DUE TO SAE
     Route: 048
     Dates: start: 20100816, end: 20101005

REACTIONS (1)
  - ENTEROCOLITIS [None]
